FAERS Safety Report 12601848 (Version 2)
Quarter: 2016Q3

REPORT INFORMATION
  Report Type: Spontaneous
  Country: FR (occurrence: FR)
  Receive Date: 20160728
  Receipt Date: 20160909
  Transmission Date: 20161109
  Serious: Yes (Hospitalization)
  Sender: FDA-Public Use
  Company Number: FR-JNJFOC-20160715107

PATIENT
  Age: 68 Year
  Sex: Female

DRUGS (8)
  1. IMBRUVICA [Suspect]
     Active Substance: IBRUTINIB
     Indication: DIFFUSE LARGE B-CELL LYMPHOMA STAGE IV
     Route: 048
     Dates: start: 20160510
  2. PREDNISONE. [Concomitant]
     Active Substance: PREDNISONE
  3. MITOXANTRONE [Suspect]
     Active Substance: MITOXANTRONE HYDROCHLORIDE
     Indication: LYMPHOMA
     Route: 042
     Dates: start: 201509
  4. ZELITREX [Concomitant]
     Active Substance: VALACYCLOVIR HYDROCHLORIDE
  5. IMBRUVICA [Suspect]
     Active Substance: IBRUTINIB
     Indication: DIFFUSE LARGE B-CELL LYMPHOMA STAGE IV
     Route: 048
     Dates: start: 20160615, end: 20160625
  6. DOXORUBICIN [Suspect]
     Active Substance: DOXORUBICIN
     Indication: LYMPHOMA
     Route: 042
     Dates: start: 20141105, end: 201502
  7. MOPRAL [Concomitant]
     Active Substance: OMEPRAZOLE SODIUM
  8. BACTRIM [Concomitant]
     Active Substance: SULFAMETHOXAZOLE\TRIMETHOPRIM

REACTIONS (5)
  - Ejection fraction decreased [Recovered/Resolved]
  - Product use issue [Unknown]
  - Cardiac failure [Recovered/Resolved]
  - Atrial fibrillation [Recovered/Resolved]
  - Off label use [Unknown]

NARRATIVE: CASE EVENT DATE: 20160625
